FAERS Safety Report 11897719 (Version 11)
Quarter: 2016Q4

REPORT INFORMATION
  Report Type: Report from Study
  Country: CA (occurrence: CA)
  Receive Date: 20160108
  Receipt Date: 20161207
  Transmission Date: 20170206
  Serious: Yes (Hospitalization, Other)
  Sender: FDA-Public Use
  Company Number: CA-ROCHE-1690197

PATIENT
  Age: 68 Year
  Sex: Male
  Weight: 75.6 kg

DRUGS (26)
  1. OMNARIS [Concomitant]
     Active Substance: CICLESONIDE
     Dosage: 2 SPRAYS AT BED TIME
     Route: 065
  2. HUMULIN NOS [Concomitant]
     Active Substance: INSULIN HUMAN
     Dosage: AS REQUIRED
     Route: 065
  3. GRAVOL [Concomitant]
     Active Substance: DIMENHYDRINATE
  4. INSULIN LISPRO [Concomitant]
     Active Substance: INSULIN LISPRO
  5. ATROVENT [Concomitant]
     Active Substance: IPRATROPIUM BROMIDE
     Dosage: 2 PUFFS 4 TIMES A DAY
     Route: 065
  6. VENTOLIN [Concomitant]
     Active Substance: ALBUTEROL SULFATE
  7. ESBRIET [Suspect]
     Active Substance: PIRFENIDONE
     Indication: IDIOPATHIC PULMONARY FIBROSIS
     Route: 048
     Dates: start: 20151204, end: 2016
  8. AMLODIPINE [Concomitant]
     Active Substance: AMLODIPINE BESYLATE
     Route: 065
  9. WARFARIN [Concomitant]
     Active Substance: WARFARIN
     Route: 065
  10. TIMOLOL. [Concomitant]
     Active Substance: TIMOLOL
     Dosage: 0.5 1 DROP IN EACH
     Route: 047
  11. HUMALOG [Concomitant]
     Active Substance: INSULIN LISPRO
     Dosage: 6 UNITS AT BREAKFAST
     Route: 058
  12. COLACE [Concomitant]
     Active Substance: DOCUSATE SODIUM
     Route: 065
  13. GLICLAZIDE [Concomitant]
     Active Substance: GLICLAZIDE
     Route: 065
  14. JANUVIA [Concomitant]
     Active Substance: SITAGLIPTIN PHOSPHATE
     Dosage: AT NIGHTTIME
     Route: 065
  15. ATORVASTATIN [Concomitant]
     Active Substance: ATORVASTATIN
     Route: 065
  16. HUMALOG [Concomitant]
     Active Substance: INSULIN LISPRO
     Dosage: 10 UNITS AT LUNCH AND SUPPER
     Route: 058
  17. SITAGLIPTIN [Concomitant]
     Active Substance: SITAGLIPTIN
  18. ESBRIET [Suspect]
     Active Substance: PIRFENIDONE
     Route: 048
  19. PANTOPRAZOL [Concomitant]
     Active Substance: PANTOPRAZOLE SODIUM
  20. PREDNISONE. [Concomitant]
     Active Substance: PREDNISONE
     Route: 065
  21. ATIVAN [Concomitant]
     Active Substance: LORAZEPAM
     Route: 065
  22. ESBRIET [Suspect]
     Active Substance: PIRFENIDONE
     Route: 048
  23. FUROSEMIDE. [Concomitant]
     Active Substance: FUROSEMIDE
     Route: 065
  24. DILTIAZEM. [Concomitant]
     Active Substance: DILTIAZEM
     Route: 065
  25. TYLENOL [Concomitant]
     Active Substance: ACETAMINOPHEN
  26. LASIX [Concomitant]
     Active Substance: FUROSEMIDE
     Route: 065

REACTIONS (25)
  - Pulmonary function test decreased [Unknown]
  - Pneumonia [Unknown]
  - Cardiac failure congestive [Unknown]
  - Dyspnoea [Not Recovered/Not Resolved]
  - Supraventricular tachycardia [Unknown]
  - Adjustment disorder with depressed mood [Unknown]
  - Asthenia [Unknown]
  - Dyspnoea [Unknown]
  - Fatigue [Unknown]
  - Cough [Unknown]
  - Nasal congestion [Not Recovered/Not Resolved]
  - Sinusitis [Unknown]
  - Weight decreased [Unknown]
  - Pulmonary oedema [Not Recovered/Not Resolved]
  - Blood glucose increased [Unknown]
  - Hypoxia [Unknown]
  - Dyspnoea exertional [Unknown]
  - Urinary tract infection [Unknown]
  - Lung disorder [Unknown]
  - Bacterial sepsis [Unknown]
  - Oxygen saturation decreased [Unknown]
  - Abasia [Recovered/Resolved]
  - Hepatic enzyme increased [Recovered/Resolved]
  - Forced vital capacity decreased [Unknown]
  - Oedema peripheral [Unknown]

NARRATIVE: CASE EVENT DATE: 20151219
